FAERS Safety Report 22271368 (Version 4)
Quarter: 2023Q4

REPORT INFORMATION
  Report Type: Report from Study
  Country: CA (occurrence: CA)
  Receive Date: 20230501
  Receipt Date: 20231113
  Transmission Date: 20240110
  Serious: No
  Sender: FDA-Public Use
  Company Number: CA-JNJFOC-20230411308

PATIENT
  Age: 33 Year
  Sex: Female

DRUGS (2)
  1. TREMFYA [Suspect]
     Active Substance: GUSELKUMAB
     Indication: Psoriasis
     Route: 058
     Dates: start: 20230208
  2. TREMFYA [Suspect]
     Active Substance: GUSELKUMAB

REACTIONS (5)
  - Syringe issue [Unknown]
  - Inappropriate schedule of product administration [Unknown]
  - Device malfunction [Unknown]
  - Accidental exposure to product [Unknown]
  - Underdose [Unknown]

NARRATIVE: CASE EVENT DATE: 20230401
